FAERS Safety Report 10371757 (Version 2)
Quarter: 2014Q3

REPORT INFORMATION
  Report Type: Spontaneous
  Country: US (occurrence: US)
  Receive Date: 20140808
  Receipt Date: 20140808
  Transmission Date: 20150326
  Serious: Yes (Hospitalization)
  Sender: FDA-Public Use
  Company Number: US-UNITED THERAPEUTICS-UNT-2014-004998

PATIENT
  Age: 67 Year
  Sex: Male
  Weight: 85.91 kg

DRUGS (2)
  1. REMODULIN [Suspect]
     Active Substance: TREPROSTINIL
     Indication: PULMONARY ARTERIAL HYPERTENSION
     Dosage: .015 ?G/KG, CONTINUING
     Route: 041
     Dates: start: 20131019
  2. REMODULIN [Suspect]
     Active Substance: TREPROSTINIL
     Indication: COR PULMONALE CHRONIC

REACTIONS (3)
  - Fungal infection [Unknown]
  - Lower respiratory tract infection [Unknown]
  - Fluid overload [Unknown]

NARRATIVE: CASE EVENT DATE: 20140729
